FAERS Safety Report 18993107 (Version 3)
Quarter: 2022Q3

REPORT INFORMATION
  Report Type: Spontaneous
  Country: JP (occurrence: JP)
  Receive Date: 20210310
  Receipt Date: 20220714
  Transmission Date: 20221027
  Serious: Yes (Death, Other)
  Sender: FDA-Public Use
  Company Number: JP-GSKJP-JP2021JPN059213AA

PATIENT

DRUGS (7)
  1. NUCALA [Suspect]
     Active Substance: MEPOLIZUMAB
     Indication: Asthma
     Dosage: 100 MG
     Route: 058
     Dates: start: 20210218
  2. TRELEGY ELLIPTA [Suspect]
     Active Substance: FLUTICASONE FUROATE\UMECLIDINIUM BROMIDE\VILANTEROL TRIFENATATE
     Indication: Asthma
     Dosage: 200 ?G, QD
     Route: 055
     Dates: start: 20210218, end: 20210223
  3. FUDOSTEINE [Concomitant]
     Active Substance: FUDOSTEINE
     Dosage: 200 MG
     Route: 048
     Dates: end: 20210223
  4. PRANLUKAST [Concomitant]
     Active Substance: PRANLUKAST
     Dosage: 225 MG
     Route: 048
     Dates: end: 20210223
  5. HERBALS [Concomitant]
     Active Substance: HERBALS
     Dosage: UNK
     Route: 048
     Dates: end: 20210223
  6. THEOPHYLLINE ANHYDROUS [Concomitant]
     Active Substance: THEOPHYLLINE ANHYDROUS
     Dosage: 100 MG
     Route: 048
     Dates: end: 20210223
  7. REMINYL [Concomitant]
     Active Substance: GALANTAMINE
     Dosage: 8 MG
     Route: 048
     Dates: end: 20210223

REACTIONS (2)
  - Pneumonia [Fatal]
  - Asthma [Fatal]
